FAERS Safety Report 15883696 (Version 1)
Quarter: 2019Q1

REPORT INFORMATION
  Report Type: Spontaneous
  Country: DE (occurrence: DE)
  Receive Date: 20190129
  Receipt Date: 20190129
  Transmission Date: 20190417
  Serious: Yes (Life-Threatening, Other)
  Sender: FDA-Public Use
  Company Number: DE-TEVA-2019-DE-1002798

PATIENT
  Age: 81 Year
  Sex: Female
  Weight: 68 kg

DRUGS (16)
  1. XIPAMIDE [Concomitant]
     Active Substance: XIPAMIDE
     Dosage: 5 MILLIGRAM DAILY;
     Route: 048
  2. MACROGOL [Concomitant]
     Active Substance: POLYETHYLENE GLYCOLS
     Dosage: 2 DOSAGE FORMS DAILY;
     Route: 048
  3. FOLSAEURE [Concomitant]
     Active Substance: FOLIC ACID
     Route: 048
  4. CERTOPARIN 8000IE [Concomitant]
     Dosage: 1 DOSAGE FORMS DAILY;
     Route: 048
  5. SPASMEX [Concomitant]
     Dosage: 15 MILLIGRAM DAILY;
     Route: 048
  6. L-THYROXIN 75 [Concomitant]
     Active Substance: LEVOTHYROXINE
     Dosage: 1 DOSAGE FORMS DAILY;
     Route: 048
  7. HYDROMORPHON [Concomitant]
     Active Substance: HYDROMORPHONE
     Dosage: 8 MILLIGRAM DAILY;
     Route: 048
  8. PALLADON AKUT 1.2MG [Concomitant]
     Route: 048
  9. CANDESARTAN 32 [Concomitant]
     Dosage: .5 DOSAGE FORMS DAILY;
     Route: 048
  10. ALENDRONIC ACID [Concomitant]
     Active Substance: ALENDRONIC ACID
     Route: 048
  11. METHOTREXAT [Suspect]
     Active Substance: METHOTREXATE
     Indication: POLYARTHRITIS
     Dates: end: 20181214
  12. METAMIZOL [Interacting]
     Active Substance: METAMIZOLE SODIUM
     Indication: PAIN
     Dosage: 4 GRAM DAILY;
     Route: 048
     Dates: end: 20181214
  13. MIRTAZAPIN [Concomitant]
     Active Substance: MIRTAZAPINE
     Dosage: 15 MILLIGRAM DAILY;
     Route: 048
  14. PANTOPRAZOL [Concomitant]
     Active Substance: PANTOPRAZOLE SODIUM
     Dosage: 20 MILLIGRAM DAILY;
     Route: 048
  15. TORASEMID [Concomitant]
     Active Substance: TORSEMIDE
     Dosage: 15 MILLIGRAM DAILY;
     Route: 048
  16. EKLIRA 322 [Concomitant]
     Dosage: 2 DOSAGE FORMS DAILY;
     Route: 055

REACTIONS (3)
  - Pneumonia [Recovering/Resolving]
  - Agranulocytosis [Recovering/Resolving]
  - Drug interaction [Recovering/Resolving]

NARRATIVE: CASE EVENT DATE: 20181214
